FAERS Safety Report 13532084 (Version 2)
Quarter: 2017Q2

REPORT INFORMATION
  Report Type: Spontaneous
  Country: US (occurrence: US)
  Receive Date: 20170510
  Receipt Date: 20170523
  Transmission Date: 20170830
  Serious: No
  Sender: FDA-Public Use
  Company Number: US-GLAXOSMITHKLINE-US2017GSK067465

PATIENT
  Sex: Female
  Weight: 70.3 kg

DRUGS (3)
  1. BUPROPION TABLET [Suspect]
     Active Substance: BUPROPION
     Indication: DEPRESSION
     Dosage: UNK, QD
  2. ARMOUR THYROID [Concomitant]
     Active Substance: THYROID, PORCINE
     Indication: THYROID DISORDER
     Dosage: 150 MG, QD
  3. WELLBUTRIN XL [Suspect]
     Active Substance: BUPROPION HYDROCHLORIDE
     Indication: DEPRESSION
     Dosage: 300 MG, QD
     Route: 048
     Dates: start: 2012

REACTIONS (2)
  - Weight increased [Unknown]
  - Weight decreased [Unknown]
